FAERS Safety Report 20052304 (Version 1)
Quarter: 2021Q4

REPORT INFORMATION
  Report Type: Spontaneous
  Country: FR (occurrence: FR)
  Receive Date: 20211110
  Receipt Date: 20211110
  Transmission Date: 20220303
  Serious: Yes (Death, Other)
  Sender: FDA-Public Use
  Company Number: None

PATIENT
  Age: 68 Year
  Sex: Female

DRUGS (3)
  1. BENDAMUSTINE [Suspect]
     Active Substance: BENDAMUSTINE
     Indication: Plasma cell myeloma
     Dosage: 70 MG, QW (2 WEEKS/CYCLE)
     Route: 065
     Dates: end: 20191022
  2. DEXAMETHASONE [Suspect]
     Active Substance: DEXAMETHASONE
     Indication: Plasma cell myeloma
     Dosage: 20 MG, QW (4 WEEKS / CYCLE)
     Route: 065
     Dates: end: 20191022
  3. VELCADE [Suspect]
     Active Substance: BORTEZOMIB
     Indication: Plasma cell myeloma
     Dosage: 2.2 MG, QW (4 WEEKS/CYCLE)
     Route: 065
     Dates: end: 20191022

REACTIONS (2)
  - Plasma cell myeloma [Fatal]
  - Acute febrile neutrophilic dermatosis [Unknown]
